FAERS Safety Report 9624320 (Version 2)
Quarter: 2013Q4

REPORT INFORMATION
  Report Type: Spontaneous
  Country: SE (occurrence: SE)
  Receive Date: 20131015
  Receipt Date: 20131015
  Transmission Date: 20140711
  Serious: Yes (Hospitalization)
  Sender: FDA-Public Use
  Company Number: SE-GILEAD-2013-0082477

PATIENT
  Age: 39 Year
  Sex: Female

DRUGS (5)
  1. TRUVADA [Suspect]
     Indication: HIV INFECTION
     Dosage: UNK
     Route: 048
     Dates: start: 20130824, end: 20130824
  2. TRUVADA [Suspect]
     Dosage: UNK
     Dates: start: 20130828, end: 20130828
  3. REYATAZ [Concomitant]
     Indication: HIV INFECTION
     Dosage: 300 MG, UNK
  4. NORVIR [Concomitant]
     Indication: HIV INFECTION
     Dosage: 100 MG, UNK
  5. PROTOPIC [Concomitant]
     Indication: PRODUCT USED FOR UNKNOWN INDICATION
     Dosage: 0.1 %, UNK

REACTIONS (6)
  - Burning sensation [Recovered/Resolved]
  - Ocular hyperaemia [Recovered/Resolved]
  - Rhinorrhoea [Recovered/Resolved]
  - Flushing [Recovered/Resolved]
  - Pruritus [Recovered/Resolved]
  - Pain [Recovered/Resolved]
